FAERS Safety Report 19033862 (Version 1)
Quarter: 2021Q1

REPORT INFORMATION
  Report Type: Spontaneous
  Country: JP (occurrence: JP)
  Receive Date: 20210320
  Receipt Date: 20210320
  Transmission Date: 20210420
  Serious: Yes (Other)
  Sender: FDA-Public Use
  Company Number: JP-SUN PHARMACEUTICAL INDUSTRIES LTD-2021RR-286773

PATIENT
  Age: 58 Year
  Sex: Female

DRUGS (15)
  1. PACLITAXEL. [Suspect]
     Active Substance: PACLITAXEL
     Indication: METASTASES TO LIVER
     Dosage: 90 MILLIGRAM/SQ. METER,  WEEKLY, 9 CYCLES
     Route: 065
  2. TRASTUZUMAB. [Suspect]
     Active Substance: TRASTUZUMAB
     Dosage: UNK, FULL?DOSE, 9 CYCLES
     Route: 065
  3. TRASTUZUMAB. [Suspect]
     Active Substance: TRASTUZUMAB
     Indication: METASTASES TO LIVER
     Dosage: 6 MILLIGRAM/KILOGRAM, FOUR TIMES EVERY 3 WEEKS
     Route: 065
  4. PERTUZUMAB. [Suspect]
     Active Substance: PERTUZUMAB
     Indication: METASTASES TO LIVER
     Dosage: 840 MG LOADING DOSE
     Route: 065
  5. DOCETAXEL. [Concomitant]
     Active Substance: DOCETAXEL
     Indication: BREAST CANCER
     Dosage: 75 MILLIGRAM/SQ. METER FOUR TIMES EVERY 3 WEEKS
     Route: 065
  6. TRASTUZUMAB. [Suspect]
     Active Substance: TRASTUZUMAB
     Indication: BREAST CANCER
     Dosage: 8 MG/KG LOADING DOSE
     Route: 065
  7. EPIRUBICIN [Concomitant]
     Active Substance: EPIRUBICIN
     Indication: BREAST CANCER
     Dosage: 100 MILLIGRAM/SQ. METER FOUR TIMES EVERY 3 WEEKS
     Route: 065
  8. PERTUZUMAB. [Suspect]
     Active Substance: PERTUZUMAB
     Dosage: FULL?DOSE, UNK, 9 CYCLES
     Route: 065
  9. TRASTUZUMAB EMTANSINE [Concomitant]
     Active Substance: ADO-TRASTUZUMAB EMTANSINE
     Indication: METASTASIS
     Dosage: 3.6 MILLIGRAM/KILOGRAM FOR 3 WEEKS, 10 CYCLES
     Route: 065
  10. ERIBULIN [Concomitant]
     Active Substance: ERIBULIN
     Indication: METASTASES TO LIVER
     Dosage: 1.4 MG/M2 ON DAYS 1 AND 8, EVERY 3 WEEKS
     Route: 065
  11. LETROZOLE. [Suspect]
     Active Substance: LETROZOLE
     Indication: BREAST CANCER
     Dosage: UNK, FULL DOSE, SCHEDULED FOR 10 YEARS
     Route: 065
  12. PERTUZUMAB. [Suspect]
     Active Substance: PERTUZUMAB
     Dosage: 420 MILLIGRAM, UNK
     Route: 065
  13. CYCLOPHOSPHAMIDE. [Concomitant]
     Active Substance: CYCLOPHOSPHAMIDE
     Indication: BREAST CANCER
     Dosage: 600 MILLIGRAM/SQ. METER FOUR TIMES EVERY 3 WEEKS
     Route: 065
  14. TRASTUZUMAB. [Suspect]
     Active Substance: TRASTUZUMAB
     Dosage: FULL?DOSE MONOTHERAPY EVERY 3 WEEKS, SCHEDULED FOR 14 CYCLES
     Route: 065
  15. TRASTUZUMAB. [Suspect]
     Active Substance: TRASTUZUMAB
     Dosage: UNK, 9 CYCLES, FULL?DOSE
     Route: 065

REACTIONS (6)
  - Febrile neutropenia [Unknown]
  - Therapy partial responder [Unknown]
  - Oedema [Unknown]
  - Cystitis haemorrhagic [Unknown]
  - Anaemia [Unknown]
  - Hypoaesthesia [Unknown]
